FAERS Safety Report 9600758 (Version 1)
Quarter: 2013Q4

REPORT INFORMATION
  Report Type: Spontaneous
  Country: US (occurrence: US)
  Receive Date: 20131004
  Receipt Date: 20131004
  Transmission Date: 20140711
  Serious: No
  Sender: FDA-Public Use
  Company Number: US-AMGEN-USASP2013036696

PATIENT
  Age: 64 Year
  Sex: Female

DRUGS (10)
  1. ENBREL [Suspect]
     Indication: PRODUCT USED FOR UNKNOWN INDICATION
     Dosage: 50 MG, QWK
     Route: 058
  2. FOLIC ACID [Concomitant]
     Dosage: 20 MG, UNK
  3. METHOTREXATE [Concomitant]
     Dosage: 2.5 MG, UNK
  4. VITAMIN C                          /00008001/ [Concomitant]
     Dosage: UNK
  5. LIPITOR [Concomitant]
     Dosage: 10 MG, UNK
  6. ALTACE [Concomitant]
     Dosage: 1.25 MG, UNK
  7. ASPIRIN [Concomitant]
     Dosage: 81 MG, UNK
  8. CALCIUM VITAMIN D [Concomitant]
     Dosage: UNK
  9. VITAMIN D                          /00107901/ [Concomitant]
     Dosage: 400 UNIT, UNK
  10. MAXZIDE [Concomitant]
     Dosage: 25 UNK, UNK

REACTIONS (1)
  - Nail bed tenderness [Unknown]
